FAERS Safety Report 6733361-9 (Version None)
Quarter: 2010Q2

REPORT INFORMATION
  Report Type: 
  Country: None (occurrence: None)
  Receive Date: 20100520
  Receipt Date: 20100512
  Transmission Date: 20101027
  Serious: Yes (Other)
  Sender: FDA-Public Use
  Company Number: JP-PFIZER INC-2010060526

PATIENT
  Age: 74 Year
  Sex: Female

DRUGS (4)
  1. ZOLOFT [Suspect]
     Indication: DEPRESSION
     Dosage: 25 MG/DAY
     Route: 048
     Dates: start: 20100319, end: 20100330
  2. ZOLOFT [Suspect]
     Dosage: 50 MG/DAY
     Route: 048
     Dates: start: 20100331, end: 20100430
  3. PARIET [Concomitant]
     Dosage: UNK
     Route: 048
  4. FAMOTIDINE [Concomitant]
     Dosage: UNK
     Route: 048

REACTIONS (2)
  - HALLUCINATION, AUDITORY [None]
  - HEARING IMPAIRED [None]
